FAERS Safety Report 18376378 (Version 1)
Quarter: 2020Q4

REPORT INFORMATION
  Report Type: Spontaneous
  Country: US (occurrence: US)
  Receive Date: 20201012
  Receipt Date: 20201012
  Transmission Date: 20210114
  Serious: Yes (Other)
  Sender: FDA-Public Use
  Company Number: None

PATIENT
  Age: 71 Year
  Sex: Male
  Weight: 60.96 kg

DRUGS (1)
  1. REMDESIVIR. [Suspect]
     Active Substance: REMDESIVIR
     Indication: COVID-19
     Dates: start: 20201011

REACTIONS (5)
  - Ear discomfort [None]
  - Tinnitus [None]
  - Hypoacusis [None]
  - Dizziness [None]
  - Penile haemorrhage [None]

NARRATIVE: CASE EVENT DATE: 20201011
